FAERS Safety Report 9515349 (Version 1)
Quarter: 2013Q1

REPORT INFORMATION
  Report Type: Spontaneous
  Country: US (occurrence: None)
  Receive Date: 20130305
  Receipt Date: 20130305
  Transmission Date: 20140127
  Serious: Yes (Hospitalization, Other)
  Sender: FDA-Public Use
  Company Number: 163-21880-12112650

PATIENT
  Age: 55 Year
  Sex: Female

DRUGS (5)
  1. REVLIMID (LENALIDOMIDE) (25 MILLIGRAM, CAPSULES) [Suspect]
     Indication: PLASMA CELL MYELOMA
     Dosage: 25 MG, 1 IN 1 D, PO
     Route: 048
     Dates: start: 20081106
  2. PULMICORT (BUDESONIDE) (UNKNOWN) [Concomitant]
  3. METFORMIN (METFORMIN) (UNKNOWN) [Concomitant]
  4. CARDURA (DOXAZOSIN MESILATE) (UNKNOWN) [Concomitant]
  5. HYZAAR (HYZAAR) (UNKNOWN) [Concomitant]

REACTIONS (1)
  - Pneumonia [None]
